FAERS Safety Report 25435398 (Version 2)
Quarter: 2025Q3

REPORT INFORMATION
  Report Type: Report from Study
  Country: US (occurrence: US)
  Receive Date: 20250613
  Receipt Date: 20250701
  Transmission Date: 20251020
  Serious: No
  Sender: MALLINCKRODT
  Company Number: US-MALLINCKRODT-MNK202503525

PATIENT
  Age: 4 Month
  Weight: 5 kg

DRUGS (3)
  1. CORTICOTROPIN [Suspect]
     Active Substance: CORTICOTROPIN
     Indication: Infantile spasms
     Route: 030
     Dates: start: 20250531
  2. KEPPRA [Concomitant]
     Active Substance: LEVETIRACETAM
  3. VIGABATRIN [Concomitant]
     Active Substance: VIGABATRIN

REACTIONS (5)
  - Pain [Unknown]
  - Poor quality sleep [Unknown]
  - Irritability [Unknown]
  - Fluid retention [Unknown]
  - Absence of immediate treatment response [Unknown]

NARRATIVE: CASE EVENT DATE: 20250101
